FAERS Safety Report 18461058 (Version 4)
Quarter: 2020Q4

REPORT INFORMATION
  Report Type: Report from Study
  Country: None (occurrence: NL)
  Receive Date: 20201104
  Receipt Date: 20201127
  Transmission Date: 20210114
  Serious: Yes (Hospitalization, Other)
  Sender: FDA-Public Use
  Company Number: NL-ABBVIE-20K-114-3630499-00

PATIENT
  Sex: Male

DRUGS (6)
  1. LEVODOPA MGA [Concomitant]
     Indication: PARKINSON^S DISEASE
     Dosage: MGA
     Route: 048
  2. DUODOPA [Suspect]
     Active Substance: CARBIDOPA\LEVODOPA
     Indication: PARKINSON^S DISEASE
     Dosage: MD 9.0ML CD 3.9ML/H ED 2.0ML REMAINS AT 16 HOURS
     Route: 050
     Dates: start: 20190205
  3. LEVODOPA MGA [Concomitant]
     Route: 048
  4. DUODOPA [Suspect]
     Active Substance: CARBIDOPA\LEVODOPA
  5. ROPINIROL [Concomitant]
     Active Substance: ROPINIROLE
     Indication: PRODUCT USED FOR UNKNOWN INDICATION
     Route: 048
  6. ROPINIROL [Concomitant]
     Active Substance: ROPINIROLE
     Route: 048

REACTIONS (13)
  - Colitis ischaemic [Unknown]
  - Volvulus [Unknown]
  - Peritonitis [Unknown]
  - Malaise [Not Recovered/Not Resolved]
  - Device occlusion [Unknown]
  - Dysphagia [Not Recovered/Not Resolved]
  - Loss of consciousness [Recovered/Resolved]
  - Mechanical ventilation [Recovered/Resolved]
  - Stoma creation [Unknown]
  - Large intestine perforation [Unknown]
  - Abdominal pain upper [Unknown]
  - Gastric disorder [Not Recovered/Not Resolved]
  - Muscle rigidity [Unknown]

NARRATIVE: CASE EVENT DATE: 2020
